FAERS Safety Report 11730559 (Version 1)
Quarter: 2015Q4

REPORT INFORMATION
  Report Type: Spontaneous
  Country: US (occurrence: US)
  Receive Date: 20151110
  Receipt Date: 20151110
  Transmission Date: 20160304
  Serious: No
  Sender: FDA-Public Use
  Company Number: US-ELI_LILLY_AND_COMPANY-US201202003597

PATIENT
  Age: 87 Year
  Sex: Female
  Weight: 97.96 kg

DRUGS (6)
  1. TYLENOL ARTHRITIS PAIN [Concomitant]
     Active Substance: ACETAMINOPHEN
  2. ARICEPT [Concomitant]
     Active Substance: DONEPEZIL HYDROCHLORIDE
  3. FORTEO [Suspect]
     Active Substance: TERIPARATIDE
     Dosage: 20 UG, QD
  4. TRIAM [Concomitant]
     Active Substance: TRIAMCINOLONE
  5. HYDROCODONE [Concomitant]
     Active Substance: HYDROCODONE
     Dosage: UNK, PRN
  6. FORTEO [Suspect]
     Active Substance: TERIPARATIDE
     Indication: OSTEOPOROSIS
     Dosage: 20 UG, QD
     Dates: start: 201111

REACTIONS (14)
  - Spinal deformity [Unknown]
  - Dysstasia [Unknown]
  - Discomfort [Unknown]
  - Pain in extremity [Unknown]
  - Balance disorder [Unknown]
  - Faecal incontinence [Unknown]
  - Asthenia [Unknown]
  - Urinary incontinence [Unknown]
  - Adverse event [Unknown]
  - Arthralgia [Unknown]
  - Ligament sprain [Unknown]
  - Gait disturbance [Unknown]
  - Dizziness [Recovered/Resolved]
  - Drug dose omission [Unknown]

NARRATIVE: CASE EVENT DATE: 201111
